FAERS Safety Report 5034662-5 (Version None)
Quarter: 2006Q2

REPORT INFORMATION
  Report Type: 
  Country: None (occurrence: None)
  Receive Date: 20060621
  Receipt Date: 20060609
  Transmission Date: 20061013
  Serious: Yes (Hospitalization)
  Sender: FDA-Public Use
  Company Number: 200611817GDS

PATIENT
  Age: 75 Year
  Sex: Female
  Weight: 72.6 kg

DRUGS (10)
  1. AVELOX [Suspect]
     Indication: RESPIRATORY TRACT INFECTION
     Dosage: 400 MG, TOTAL DAILY
     Dates: start: 20051222, end: 20051228
  2. RYTHMOL [Suspect]
     Indication: ATRIAL FIBRILLATION
     Dosage: 900 MG, TOTAL DAILY
     Dates: start: 20051222
  3. COUMADIN [Suspect]
     Dosage: 2.5 MG, TOTAL;   4 MG, TOTAL DAILY
     Dates: start: 20051220
  4. COUMADIN [Suspect]
     Dosage: 2.5 MG, TOTAL;   4 MG, TOTAL DAILY
     Dates: start: 20051222
  5. ACTONEL [Concomitant]
  6. ELTROXIN [Concomitant]
  7. FLOVENT [Concomitant]
  8. LOSEC [Concomitant]
  9. UNIPHYL [Concomitant]
  10. VERAPAMIL [Concomitant]

REACTIONS (5)
  - ATRIOVENTRICULAR BLOCK FIRST DEGREE [None]
  - CONFUSIONAL STATE [None]
  - ELECTROCARDIOGRAM QT PROLONGED [None]
  - PROTHROMBIN TIME PROLONGED [None]
  - VENTRICULAR TACHYCARDIA [None]
